FAERS Safety Report 16265311 (Version 1)
Quarter: 2019Q2

REPORT INFORMATION
  Report Type: Spontaneous
  Country: US (occurrence: US)
  Receive Date: 20190501
  Receipt Date: 20190501
  Transmission Date: 20190711
  Serious: Yes (Death)
  Sender: FDA-Public Use
  Company Number: None

PATIENT
  Age: 61 Year
  Sex: Female
  Weight: 105.3 kg

DRUGS (1)
  1. AGGRASTAT [Suspect]
     Active Substance: TIROFIBAN HYDROCHLORIDE
     Indication: CORONARY ARTERIAL STENT INSERTION
     Dates: start: 20180719, end: 20180720

REACTIONS (2)
  - Shock haemorrhagic [None]
  - Sudden death [None]

NARRATIVE: CASE EVENT DATE: 20180720
